FAERS Safety Report 9363648 (Version 1)
Quarter: 2013Q2

REPORT INFORMATION
  Report Type: Spontaneous
  Country: US (occurrence: US)
  Receive Date: 20130624
  Receipt Date: 20130624
  Transmission Date: 20140414
  Serious: Yes (Other)
  Sender: FDA-Public Use
  Company Number: US-MYLANLABS-2013S1012863

PATIENT
  Age: 6 Decade
  Sex: Female

DRUGS (3)
  1. PREGABALIN [Suspect]
     Indication: COMPLEX PARTIAL SEIZURES
     Dosage: START DOSAGE UNKNOWN; SLOWLY INCREASED TO 150 MG/DAY IN THREE DIVIDED DOSES.
     Route: 065
  2. LAMOTRIGINE [Suspect]
     Indication: COMPLEX PARTIAL SEIZURES
     Dosage: START DOSAGE UNKNOWN; INCREASED TO 700MG DAILY IN THREE DIVIDED DOSES.
     Route: 065
  3. OXCARBAZEPINE [Suspect]
     Indication: COMPLEX PARTIAL SEIZURES
     Dosage: START DOSAGE UNKNOWN; INCREASED TO 1200MG DAILY IN TWO DIVIDED DOSES.
     Route: 065

REACTIONS (8)
  - Complex partial seizures [Recovered/Resolved]
  - Atonic seizures [Recovered/Resolved]
  - Grand mal convulsion [Recovered/Resolved]
  - Cognitive disorder [Recovered/Resolved]
  - Ataxia [Recovered/Resolved]
  - Balance disorder [Recovered/Resolved]
  - Nausea [Unknown]
  - Vomiting [Unknown]
